FAERS Safety Report 7568351-X (Version None)
Quarter: 2011Q2

REPORT INFORMATION
  Report Type: 
  Country: None (occurrence: None)
  Receive Date: 20110623
  Receipt Date: 20110617
  Transmission Date: 20111010
  Serious: Yes (Disabling)
  Sender: FDA-Public Use
  Company Number: A0931882A

PATIENT
  Age: 58 Year
  Sex: Female

DRUGS (2)
  1. WELLBUTRIN XL [Concomitant]
  2. LAMICTAL [Suspect]
     Indication: MAJOR DEPRESSION
     Dosage: 5MG SINGLE DOSE
     Route: 048

REACTIONS (5)
  - OFF LABEL USE [None]
  - POOR QUALITY SLEEP [None]
  - AGITATION [None]
  - ANGER [None]
  - WRONG TECHNIQUE IN DRUG USAGE PROCESS [None]
